FAERS Safety Report 21512029 (Version 2)
Quarter: 2023Q1

REPORT INFORMATION
  Report Type: Spontaneous
  Country: US (occurrence: US)
  Receive Date: 20221027
  Receipt Date: 20230118
  Transmission Date: 20230418
  Serious: No
  Sender: FDA-Public Use
  Company Number: US-SA-SAC20221020001461

PATIENT
  Age: 68 Year
  Sex: Female

DRUGS (1)
  1. DUPIXENT [Suspect]
     Active Substance: DUPILUMAB
     Indication: Dermatitis atopic
     Dosage: 300 MG EVERY 2 WEEKS
     Route: 058
     Dates: start: 201903

REACTIONS (5)
  - Urticaria [Unknown]
  - Temperature intolerance [Unknown]
  - Dry skin [Unknown]
  - Rash macular [Unknown]
  - Dermatitis atopic [Not Recovered/Not Resolved]
